FAERS Safety Report 9730923 (Version 1)
Quarter: 2013Q4

REPORT INFORMATION
  Report Type: Spontaneous
  Country: US (occurrence: US)
  Receive Date: 20131205
  Receipt Date: 20131205
  Transmission Date: 20140711
  Serious: Yes (Hospitalization)
  Sender: FDA-Public Use
  Company Number: US-B.I. PHARMACEUTICALS,INC./RIDGEFIELD-2013-BI-40203BP

PATIENT
  Age: 77 Year
  Sex: Female
  Weight: 68 kg

DRUGS (9)
  1. ATROVENT INHALATION SOLUTION [Suspect]
     Indication: CHRONIC OBSTRUCTIVE PULMONARY DISEASE
     Dosage: 34 MCG
     Route: 055
     Dates: start: 2010, end: 201310
  2. OSCAL [Concomitant]
     Indication: ARTHRITIS
     Dosage: 1000 MG
     Route: 048
  3. VENLAFAXINE [Concomitant]
     Indication: DEPRESSION
     Dosage: 150 MG
     Route: 048
  4. METOPROLOL [Concomitant]
     Indication: HYPERTENSION
     Dosage: 12.5 MG
     Route: 048
  5. MELOXICAM [Concomitant]
     Indication: ARTHRITIS
     Dosage: 7.5 MG
     Route: 048
  6. PROBIOTIC [Concomitant]
     Route: 048
  7. ALLEGRA [Concomitant]
     Indication: MULTIPLE ALLERGIES
     Route: 048
  8. NEXIUM [Concomitant]
     Indication: GASTROOESOPHAGEAL REFLUX DISEASE
     Dosage: 40 MG
     Route: 048
  9. LEVOTHYROXINE [Concomitant]
     Indication: HYPOTHYROIDISM
     Dosage: 50 MCG
     Route: 048

REACTIONS (2)
  - Hip fracture [Recovered/Resolved]
  - Fall [Recovered/Resolved]
